FAERS Safety Report 6486076-9 (Version None)
Quarter: 2009Q4

REPORT INFORMATION
  Report Type: 
  Country: None (occurrence: None)
  Receive Date: 20091207
  Receipt Date: 20091123
  Transmission Date: 20100525
  Serious: No
  Sender: FDA-Public Use
  Company Number: 2009AC000446

PATIENT
  Age: 59 Year
  Sex: Male

DRUGS (8)
  1. DIGOXIN [Suspect]
     Dosage: PO
     Route: 048
     Dates: start: 19990101
  2. COUMADIN [Concomitant]
  3. COMBIVENT [Concomitant]
  4. ADVAIR DISKUS 100/50 [Concomitant]
  5. KEFLEX [Concomitant]
  6. ADDERALL 10 [Concomitant]
  7. SPIRONOLACTONE [Concomitant]
  8. KLONOPIN [Concomitant]

REACTIONS (9)
  - BLOOD PRESSURE DECREASED [None]
  - CARDIAC DISORDER [None]
  - CHRONIC OBSTRUCTIVE PULMONARY DISEASE [None]
  - ECONOMIC PROBLEM [None]
  - HEPATITIS C [None]
  - MULTIPLE INJURIES [None]
  - PEAU D'ORANGE [None]
  - SURGERY [None]
  - UNEVALUABLE EVENT [None]
